FAERS Safety Report 16530989 (Version 1)
Quarter: 2019Q3

REPORT INFORMATION
  Report Type: Spontaneous
  Country: US (occurrence: US)
  Receive Date: 20190523
  Receipt Date: 20190523
  Transmission Date: 20191004
  Serious: Yes (Hospitalization)
  Sender: FDA-Public Use
  Company Number: None

PATIENT
  Age: 48 Year
  Sex: Male
  Weight: 107 kg

DRUGS (2)
  1. IFOSFAMIDE. [Suspect]
     Active Substance: IFOSFAMIDE
     Dates: end: 20190505
  2. TAXOL [Suspect]
     Active Substance: PACLITAXEL
     Dates: end: 20190503

REACTIONS (2)
  - Body temperature increased [None]
  - Hypotension [None]

NARRATIVE: CASE EVENT DATE: 20190514
